FAERS Safety Report 10759073 (Version 6)
Quarter: 2015Q3

REPORT INFORMATION
  Report Type: Report from Study
  Country: DE (occurrence: DE)
  Receive Date: 20150203
  Receipt Date: 20150717
  Transmission Date: 20151125
  Serious: Yes (Hospitalization)
  Sender: FDA-Public Use
  Company Number: DE-MERCK-1501DEU011670

PATIENT
  Age: 83 Year
  Sex: Male

DRUGS (8)
  1. TAMSULOSIN HYDROCHLORIDE. [Concomitant]
     Active Substance: TAMSULOSIN HYDROCHLORIDE
     Route: 048
  2. BISOPROLOL [Concomitant]
     Active Substance: BISOPROLOL
     Route: 048
  3. LISINOPRIL (+) HYDROCHLOROTHIAZIDE [Concomitant]
     Active Substance: HYDROCHLOROTHIAZIDE\LISINOPRIL
     Route: 048
  4. PEMBROLIZUMAB. [Suspect]
     Active Substance: PEMBROLIZUMAB
     Indication: METASTATIC MALIGNANT MELANOMA
     Dosage: 2 MG/KG, Q3W
     Route: 042
     Dates: start: 20141007, end: 20141230
  5. PANTOPRAZOLE [Concomitant]
     Active Substance: PANTOPRAZOLE SODIUM
     Route: 048
  6. DUTASTERIDE. [Concomitant]
     Active Substance: DUTASTERIDE
     Route: 048
  7. TORSEMIDE. [Concomitant]
     Active Substance: TORSEMIDE
     Route: 048
  8. PHENPROCOUMON [Concomitant]
     Active Substance: PHENPROCOUMON
     Route: 048

REACTIONS (1)
  - IIIrd nerve paresis [Recovering/Resolving]
